FAERS Safety Report 4795409-0 (Version None)
Quarter: 2005Q3

REPORT INFORMATION
  Report Type: 
  Country: None (occurrence: None)
  Receive Date: 20050919
  Receipt Date: 20050720
  Transmission Date: 20060218
  Serious: No
  Sender: FDA-Public Use
  Company Number: US-JNJFOC-20050500249

PATIENT
  Age: 28 Year
  Sex: Female
  Weight: 47.6277 kg

DRUGS (2)
  1. ORTHO TRI-CYCLEN LO [Suspect]
     Indication: CONTRACEPTION
     Dosage: 1 DOSE(S), 1 IN 1 DAY, ORAL
     Route: 048
  2. ACETYLSALICYLIC ACID SRT [Concomitant]

REACTIONS (2)
  - MUSCULOSKELETAL DISCOMFORT [None]
  - PARAESTHESIA [None]
